FAERS Safety Report 11629585 (Version 1)
Quarter: 2015Q4

REPORT INFORMATION
  Report Type: Spontaneous
  Country: None (occurrence: None)
  Receive Date: 20151013
  Receipt Date: 20151013
  Transmission Date: 20160304
  Serious: Yes (Other)
  Sender: FDA-Public Use
  Company Number: None

PATIENT
  Age: 82 Year
  Sex: Male
  Weight: 90.5 kg

DRUGS (42)
  1. IRON SUCROSE [Suspect]
     Active Substance: IRON SUCROSE
     Indication: MINERAL SUPPLEMENTATION
     Route: 042
     Dates: start: 20151007, end: 20151008
  2. NACL 0.9% SOLUTION (NACL 0.9%)?INFUSION [Concomitant]
  3. INSULIN (LISPRO) CORRECTION TABLE SOLUTION (HUMALOG)? [Concomitant]
  4. ACETAMINOPHEN (TYLENOL)? [Concomitant]
  5. APPLE JUICE LIQUID [Concomitant]
  6. INSULIN LISPRO(HUMALOG) SOLUTION (HUMALOG)? [Concomitant]
  7. MYLANTA SUSPENSION (MYLANTA)? [Concomitant]
  8. ONDANSETRON SOLUTION [Concomitant]
  9. DEXTROSE GEL (GLUCOSE GEL)? [Concomitant]
  10. ADVAIR 500-50 MCG/DOSE AEROSOL POWDER, BREATH ACTIVATED (ADVAIR) [Concomitant]
  11. VANCOMYCIN [Concomitant]
     Active Substance: VANCOMYCIN
  12. FAMOTIDINE (PEPCID)?? [Concomitant]
  13. PROPOFOL (DIPRIVAN) [Concomitant]
  14. ALBUTEROL-IPRATROPIUM  (DUONEB)? [Concomitant]
  15. ALBUMIN 25% SOLUTION [Concomitant]
  16. INSULIN LISPRO (HUMALOG) PEN SOLUTION [Concomitant]
  17. LORAZEPAM. [Concomitant]
     Active Substance: LORAZEPAM
  18. GLUCOSE CHEW [Concomitant]
  19. CETIRIZINE (ZYRTEC) (ZYRTEC)? [Concomitant]
  20. FINASTERIDE (PROSCAR)? [Concomitant]
  21. GABAPENTIN (NEURONTIN)? [Concomitant]
  22. GUAIFENESIN LA SR [Concomitant]
  23. HEPARIN SOLUTION ? [Concomitant]
  24. PEN-INJECTOR 12 UNITS (HUMALOG PEN)? [Concomitant]
  25. DEXMEDETOMIDINE (PRECEDEX) [Concomitant]
  26. DEXTROSE SOLUTION [Concomitant]
     Active Substance: DEXTROSE
  27. GLUCAGON RECON SOLN? [Concomitant]
  28. BUDESONIDE POWDER INHALER AEROSOL POWDER, BREATH ACTIVATED 2 PUFF (PULMICORT)? [Concomitant]
  29. DOCUSATE  (COLACE)? [Concomitant]
  30. BUMETANIDE SOLUTION [Concomitant]
  31. TOBRAMYCIN (NEBCIN)? [Concomitant]
  32. NOREPINEPHRINE [Concomitant]
     Active Substance: NOREPINEPHRINE\NOREPINEPHRINE BITARTRATE
  33. PANTOPRAZOLE (PROTONIX)?? [Concomitant]
  34. INSULIN GLARGINE(LANTUS) SOLUTION [Concomitant]
  35. ASPIRIN ENTERIC-COATED EC 81 MG (ASPIRIN)? [Concomitant]
  36. VITAMIN D ? [Concomitant]
  37. MELATONIN [Concomitant]
     Active Substance: MELATONIN
  38. PRAVASTATIN TAB [Concomitant]
  39. IRON SUCROSE [Concomitant]
     Active Substance: IRON SUCROSE
  40. ERYTHROPOETIN SOLUTION [Concomitant]
  41. CALCITRIOL? [Concomitant]
  42. FLUTICASONE 50 MCG/ACT SUSPENSION 2 SPRAY (FLONASE AQ)? [Concomitant]

REACTIONS (4)
  - Tachypnoea [None]
  - Hypotension [None]
  - Tachycardia [None]
  - Hypothermia [None]

NARRATIVE: CASE EVENT DATE: 20151007
